FAERS Safety Report 6586124-1 (Version None)
Quarter: 2010Q1

REPORT INFORMATION
  Report Type: 
  Country: None (occurrence: None)
  Receive Date: 20100217
  Receipt Date: 20090129
  Transmission Date: 20100710
  Serious: No
  Sender: FDA-Public Use
  Company Number: US-ALLERGAN-0815629US

PATIENT
  Age: 37 Year
  Sex: Male

DRUGS (2)
  1. BOTOX [Suspect]
     Indication: TORTICOLLIS
     Dosage: 200 UNITS, SINGLE
     Route: 030
     Dates: start: 20081027, end: 20081027
  2. BOTOX [Suspect]
     Dosage: 4-6 MONTHS APART
     Route: 030
     Dates: start: 20060101

REACTIONS (2)
  - ERECTILE DYSFUNCTION [None]
  - WRONG TECHNIQUE IN DRUG USAGE PROCESS [None]
